FAERS Safety Report 25953442 (Version 1)
Quarter: 2025Q4

REPORT INFORMATION
  Report Type: Spontaneous
  Country: US (occurrence: None)
  Receive Date: 20251023
  Receipt Date: 20251023
  Transmission Date: 20260117
  Serious: Yes (Hospitalization)
  Sender: FDA-CTU
  Company Number: None

PATIENT
  Age: 54 Year
  Sex: Male

DRUGS (2)
  1. TAVNEOS [Suspect]
     Active Substance: AVACOPAN
     Dosage: FREQUENCY : TWICE A DAY;?
     Route: 048
  2. RITUXAN [Suspect]
     Active Substance: RITUXIMAB

REACTIONS (9)
  - Product dose omission in error [None]
  - Memory impairment [None]
  - Blood pressure increased [None]
  - Renal impairment [None]
  - Blood creatinine increased [None]
  - Diarrhoea [None]
  - Influenza [None]
  - Immune system disorder [None]
  - Therapeutic product effect incomplete [None]

NARRATIVE: CASE EVENT DATE: 20251023
